FAERS Safety Report 8716403 (Version 2)
Quarter: 2013Q4

REPORT INFORMATION
  Report Type: Report from Study
  Country: US (occurrence: US)
  Receive Date: 20120810
  Receipt Date: 20131101
  Transmission Date: 20140711
  Serious: No
  Sender: FDA-Public Use
  Company Number: US-009507513-1208USA000550

PATIENT
  Age: 21 Year
  Sex: Female

DRUGS (4)
  1. RIBAVIRIN (+) INTERFERON ALFA-2B [Suspect]
     Route: 048
  2. PEGINTRON [Suspect]
  3. VITAMINS (UNSPECIFIED) [Concomitant]
     Indication: PREGNANCY
     Dosage: UNK
     Dates: start: 20101201
  4. FOLIC ACID [Concomitant]
     Indication: PREGNANCY
     Dosage: UNK
     Dates: start: 20101201, end: 20110201

REACTIONS (1)
  - Maternal exposure before pregnancy [Unknown]
